FAERS Safety Report 5150573-9 (Version None)
Quarter: 2006Q4

REPORT INFORMATION
  Report Type: 
  Country: None (occurrence: None)
  Receive Date: 20061114
  Receipt Date: 20061031
  Transmission Date: 20070319
  Serious: No
  Sender: FDA-Public Use
  Company Number: US-ELI_LILLY_AND_COMPANY-US200611000631

PATIENT
  Sex: Female

DRUGS (3)
  1. CYMBALTA [Suspect]
     Dosage: 60 MG, UNK
     Dates: start: 20061013, end: 20061030
  2. CYMBALTA [Suspect]
     Dosage: 30 MG, UNK
     Dates: start: 20061006, end: 20061012
  3. ALCOHOL [Concomitant]

REACTIONS (2)
  - DECREASED APPETITE [None]
  - HEPATIC ENZYME INCREASED [None]
